FAERS Safety Report 10975987 (Version 1)
Quarter: 2015Q2

REPORT INFORMATION
  Report Type: Other
  Country: DE (occurrence: DE)
  Receive Date: 20150401
  Receipt Date: 20150401
  Transmission Date: 20150821
  Serious: Yes (Other)
  Sender: FDA-Public Use
  Company Number: DE-MYLANLABS-2015M1009296

PATIENT

DRUGS (2)
  1. LEVOFLOXACIN. [Suspect]
     Active Substance: LEVOFLOXACIN
     Dosage: 500 MG, UNK
  2. LEVOFLOXACIN. [Suspect]
     Active Substance: LEVOFLOXACIN
     Dosage: 250 MG, UNK

REACTIONS (25)
  - Constipation [Unknown]
  - Restlessness [Unknown]
  - Tinnitus [Unknown]
  - Tachycardia [Unknown]
  - Negative thoughts [Unknown]
  - Abdominal pain [Unknown]
  - Blood pressure decreased [Unknown]
  - Head discomfort [Unknown]
  - Musculoskeletal chest pain [Unknown]
  - Hyperhidrosis [Unknown]
  - Hypoacusis [Unknown]
  - Malaise [Unknown]
  - Decreased appetite [Unknown]
  - Dizziness [Unknown]
  - Myalgia [Unknown]
  - Disturbance in attention [Unknown]
  - Dysaesthesia [Unknown]
  - Nightmare [Unknown]
  - Back pain [Unknown]
  - Arthralgia [Unknown]
  - Depressed mood [Unknown]
  - Insomnia [Unknown]
  - Visual impairment [Unknown]
  - Pain in extremity [Unknown]
  - Asthenia [Unknown]
